FAERS Safety Report 6185438-7 (Version None)
Quarter: 2009Q2

REPORT INFORMATION
  Report Type: 
  Country: None (occurrence: None)
  Receive Date: 20090511
  Receipt Date: 20090501
  Transmission Date: 20091009
  Serious: Yes (Hospitalization, Other)
  Sender: FDA-Public Use
  Company Number: JP-ASTRAZENECA-2009SE01199

PATIENT
  Sex: Male

DRUGS (1)
  1. AMIAS 8 MG TABLETS [Suspect]
     Indication: HYPERTENSION
     Route: 065

REACTIONS (6)
  - FATIGUE [None]
  - GRIP STRENGTH DECREASED [None]
  - MUSCULAR WEAKNESS [None]
  - MYALGIA [None]
  - MYOPATHY [None]
  - SPEECH DISORDER [None]
